FAERS Safety Report 9174015 (Version 1)
Quarter: 2013Q1

REPORT INFORMATION
  Report Type: Spontaneous
  Country: US (occurrence: None)
  Receive Date: 20130315
  Receipt Date: 20130315
  Transmission Date: 20140127
  Serious: Yes (Life-Threatening, Hospitalization)
  Sender: FDA-Public Use
  Company Number: SYM-2013-01495

PATIENT
  Age: 15 Year
  Sex: Female

DRUGS (2)
  1. ZYBAN [Suspect]
     Indication: INTENTIONAL OVERDOSE
     Route: 048
     Dates: start: 20130107, end: 20130107
  2. HPV 16-18 [Suspect]
     Indication: PROPHYLAXIS
     Route: 030
     Dates: start: 20120207, end: 20120207

REACTIONS (3)
  - Altered state of consciousness [None]
  - Grand mal convulsion [None]
  - Intentional overdose [None]
